FAERS Safety Report 17490791 (Version 1)
Quarter: 2020Q1

REPORT INFORMATION
  Report Type: Spontaneous
  Country: DE (occurrence: DE)
  Receive Date: 20200303
  Receipt Date: 20200303
  Transmission Date: 20200409
  Serious: Yes (Life-Threatening, Hospitalization, Other)
  Sender: FDA-Public Use
  Company Number: DE-ASTRAZENECA-2020SE17412

PATIENT
  Age: 25598 Day
  Sex: Female
  Weight: 50 kg

DRUGS (5)
  1. ENALAPRIL [Concomitant]
     Active Substance: ENALAPRIL
  2. LYNPARZA [Suspect]
     Active Substance: OLAPARIB
     Indication: OVARIAN CANCER RECURRENT
     Dosage: 150 MG ONE TABLET IN THE MORNING AND ONE IN THE EVENING
     Route: 048
  3. LYNPARZA [Suspect]
     Active Substance: OLAPARIB
     Indication: OVARIAN CANCER RECURRENT
     Route: 048
     Dates: start: 201904
  4. LYNPARZA [Suspect]
     Active Substance: OLAPARIB
     Indication: OVARIAN CANCER RECURRENT
     Dosage: 150 MG 2 TABLETS IN THE MORNING AND A TABLET IN THE EVENING
     Route: 048
     Dates: start: 20190617
  5. METOPROLOL. [Concomitant]
     Active Substance: METOPROLOL

REACTIONS (13)
  - Ascites [Unknown]
  - Ischaemia [Unknown]
  - Off label use [Unknown]
  - Dizziness [Unknown]
  - Renal cyst [Unknown]
  - Ileus [Recovered/Resolved]
  - Stenosis [Unknown]
  - Blood creatinine increased [Unknown]
  - Mass [Unknown]
  - Liver disorder [Unknown]
  - Paraesthesia [Unknown]
  - Glomerular filtration rate decreased [Unknown]
  - Pleural effusion [Unknown]

NARRATIVE: CASE EVENT DATE: 20190617
